FAERS Safety Report 6453191-5 (Version None)
Quarter: 2009Q4

REPORT INFORMATION
  Report Type: 
  Country: None (occurrence: None)
  Receive Date: 20091123
  Receipt Date: 20091123
  Transmission Date: 20100525
  Serious: No
  Sender: FDA-Public Use
  Company Number: None

PATIENT
  Sex: Male
  Weight: 12.9 kg

DRUGS (3)
  1. PEG-L- ASPARAGINASE (PEGASPARGASE, ONCOSPAR) [Suspect]
     Dosage: 2800 MILLION IU
     Dates: start: 20091013
  2. VINCRISTINE SULFATE [Suspect]
     Dosage: 25 MG
     Dates: start: 20091012
  3. METHOTREXATE [Suspect]
     Dosage: 275 MG
     Dates: start: 20091012

REACTIONS (1)
  - BLOOD BILIRUBIN ABNORMAL [None]
